FAERS Safety Report 8000321-X (Version None)
Quarter: 2011Q4

REPORT INFORMATION
  Report Type: 
  Country: None (occurrence: None)
  Receive Date: 20111222
  Receipt Date: 20111214
  Transmission Date: 20120403
  Serious: Yes (Hospitalization)
  Sender: FDA-Public Use
  Company Number: KR-ASTELLAS-2011JP003701

PATIENT
  Age: 63 Year
  Sex: Female
  Weight: 51 kg

DRUGS (5)
  1. DOMPERIDONE MALEATE [Concomitant]
     Dosage: UNK
     Route: 048
     Dates: start: 20050725
  2. SOLIFENACIN SUCCINATE [Suspect]
     Indication: URINARY INCONTINENCE
     Dosage: 5 MG, UNKNOWN/D
     Route: 048
     Dates: start: 20110324, end: 20110420
  3. L-DOPA+BENSERAZIDE [Concomitant]
     Dosage: UNK
     Route: 048
     Dates: start: 20070117
  4. MAGNESIUM OXIDE [Concomitant]
     Dosage: UNK
     Route: 048
     Dates: start: 20050914
  5. ROPINIROLE [Concomitant]
     Dosage: UNK
     Route: 065
     Dates: start: 20050725

REACTIONS (1)
  - TRANSITIONAL CELL CARCINOMA [None]
